FAERS Safety Report 10343850 (Version 6)
Quarter: 2014Q4

REPORT INFORMATION
  Report Type: Spontaneous
  Country: US (occurrence: US)
  Receive Date: 20140726
  Receipt Date: 20141110
  Transmission Date: 20150528
  Serious: Yes (Hospitalization, Other)
  Sender: FDA-Public Use
  Company Number: US-JNJFOC-20140710344

PATIENT
  Age: 27 Year
  Sex: Female
  Weight: 65.77 kg

DRUGS (4)
  1. TYLENOL EXTRA STRENGTH [Suspect]
     Active Substance: ACETAMINOPHEN
     Indication: PAIN
     Dosage: 2 CAPLETS EVERY 4-6 HOURS, 6 A DAY
     Route: 048
     Dates: start: 20110721, end: 20110726
  2. PERCOCET [Suspect]
     Active Substance: ACETAMINOPHEN\OXYCODONE HYDROCHLORIDE
     Indication: ARTHRALGIA
     Dosage: 4-5 DOSAGE FORMS
     Route: 065
  3. PERCOCET [Suspect]
     Active Substance: ACETAMINOPHEN\OXYCODONE HYDROCHLORIDE
     Indication: TOOTH DISORDER
     Dosage: 4-5 DOSAGE FORMS
     Route: 065
  4. ENDOCET [Concomitant]
     Active Substance: ACETAMINOPHEN\OXYCODONE HYDROCHLORIDE
     Indication: PAIN
     Dosage: 1 DOSE EVERY 4-6 HOURS
     Route: 065
     Dates: start: 20110621, end: 20110726

REACTIONS (2)
  - Toxicity to various agents [Unknown]
  - Liver injury [Unknown]

NARRATIVE: CASE EVENT DATE: 20110726
